FAERS Safety Report 6856420-9 (Version None)
Quarter: 2010Q3

REPORT INFORMATION
  Report Type: 
  Country: None (occurrence: None)
  Receive Date: 20100719
  Receipt Date: 20100708
  Transmission Date: 20110219
  Serious: Yes (Other)
  Sender: FDA-Public Use
  Company Number: JP-ROCHE-697508

PATIENT
  Sex: Female

DRUGS (6)
  1. CAPECITABINE [Suspect]
     Indication: COLON CANCER
     Route: 048
     Dates: start: 20081105, end: 20081118
  2. CAPECITABINE [Suspect]
     Route: 048
     Dates: start: 20081126, end: 20081209
  3. CAPECITABINE [Suspect]
     Route: 048
     Dates: start: 20081217, end: 20081230
  4. CAPECITABINE [Suspect]
     Route: 048
     Dates: start: 20090107, end: 20090120
  5. CAPECITABINE [Suspect]
     Route: 048
     Dates: start: 20090128, end: 20090210
  6. CAPECITABINE [Suspect]
     Dosage: DISCONTINUED
     Route: 048
     Dates: start: 20090218, end: 20090303

REACTIONS (1)
  - INTESTINAL OBSTRUCTION [None]
